FAERS Safety Report 23780106 (Version 2)
Quarter: 2024Q2

REPORT INFORMATION
  Report Type: Spontaneous
  Country: GB (occurrence: GB)
  Receive Date: 20240424
  Receipt Date: 20240508
  Transmission Date: 20240716
  Serious: Yes (Hospitalization, Other)
  Sender: FDA-Public Use
  Company Number: GB-BRISTOL-MYERS SQUIBB COMPANY-2024-060507

PATIENT
  Age: 74 Year
  Sex: Male

DRUGS (3)
  1. ELIQUIS [Suspect]
     Active Substance: APIXABAN
     Indication: Atrial fibrillation
     Route: 048
     Dates: start: 2021, end: 202404
  2. VALSARTAN [Concomitant]
     Active Substance: VALSARTAN
     Indication: Hypertension
  3. BISOPROLOL FUMARATE [Concomitant]
     Active Substance: BISOPROLOL FUMARATE
     Indication: Atrial fibrillation
     Dosage: SLOW HEART RATE WHEN IN ATRIAL FIBRILLATION MODE

REACTIONS (3)
  - Eye haemorrhage [Recovering/Resolving]
  - Open globe injury [Recovering/Resolving]
  - Skin haemorrhage [Unknown]

NARRATIVE: CASE EVENT DATE: 20240410
